FAERS Safety Report 4825317-8 (Version None)
Quarter: 2005Q4

REPORT INFORMATION
  Report Type: 
  Country: None (occurrence: None)
  Receive Date: 20051111
  Receipt Date: 20051004
  Transmission Date: 20060501
  Serious: Yes (Hospitalization, Other)
  Sender: FDA-Public Use
  Company Number: US-AMGEN-US152936

PATIENT
  Sex: Female
  Weight: 71.7 kg

DRUGS (6)
  1. ENBREL [Suspect]
     Indication: RHEUMATOID ARTHRITIS
     Dates: start: 20010920, end: 20050712
  2. ALENDRONATE SODIUM [Concomitant]
     Dates: start: 20010116
  3. VITAMIN D [Concomitant]
     Dates: start: 20010116
  4. CALCIUM GLUCONATE [Concomitant]
     Dates: start: 20010116
  5. CELEBREX [Concomitant]
     Dates: start: 20040429, end: 20041028
  6. IMURAN [Concomitant]
     Dates: start: 20011016, end: 20021107

REACTIONS (4)
  - ANAEMIA [None]
  - COLITIS ULCERATIVE [None]
  - CONDITION AGGRAVATED [None]
  - DIVERTICULUM [None]
